FAERS Safety Report 9508591 (Version 1)
Quarter: 2013Q1

REPORT INFORMATION
  Report Type: Spontaneous
  Country: US (occurrence: None)
  Receive Date: 20130305
  Receipt Date: 20130305
  Transmission Date: 20140127
  Serious: Yes (Other)
  Sender: FDA-Public Use
  Company Number: 163-21880-11092072

PATIENT
  Age: 62 Year
  Sex: Male

DRUGS (12)
  1. REVLIMID (LENALIDOMIDE) (25 MILLIGRAM, CAPSULES) [Suspect]
     Indication: PLASMA CELL MYELOMA
     Dosage: 25 MG, 21 IN 21 D, PO
     Route: 048
     Dates: start: 20110128
  2. REVLIMID (LENALIDOMIDE) (25 MILLIGRAM, CAPSULES) [Suspect]
     Indication: IRON DEFICIENCY ANAEMIA
     Dosage: 25 MG, 21 IN 21 D, PO
     Route: 048
     Dates: start: 20110128
  3. ZOLEDRONIC ACID [Concomitant]
  4. BORTEZOMIB [Concomitant]
  5. ACIPHEX (RABEPRAZOLE) [Concomitant]
  6. DIGOXIN [Concomitant]
  7. IRON [Concomitant]
  8. MULTIVITAMINS FOR HIM (MULTIVITAMINS) [Concomitant]
  9. OMEGA 3 (FISH OIL) [Concomitant]
  10. ROGAINE (MINOXIDIL) [Concomitant]
  11. SAW PALMETTO (SERENOA REPENS) [Concomitant]
  12. WARFARIN [Concomitant]

REACTIONS (2)
  - Rash papular [None]
  - Rash [None]
